FAERS Safety Report 16212760 (Version 1)
Quarter: 2019Q2

REPORT INFORMATION
  Report Type: Spontaneous
  Country: US (occurrence: US)
  Receive Date: 20190418
  Receipt Date: 20190418
  Transmission Date: 20190711
  Serious: No
  Sender: FDA-Public Use
  Company Number: US-ASTELLAS-2018US028049

PATIENT
  Age: 74 Year
  Sex: Female

DRUGS (1)
  1. LEXISCAN [Suspect]
     Active Substance: REGADENOSON
     Indication: CARDIAC STRESS TEST
     Dosage: PROBABLY ONLY RECEIVED ABOUT 3 ML, OTHER (ONCE)
     Route: 042
     Dates: start: 20180619, end: 20180619

REACTIONS (3)
  - Wrong technique in product usage process [Unknown]
  - Injection site extravasation [Unknown]
  - Limb discomfort [Recovered/Resolved]
